FAERS Safety Report 6249701-3 (Version None)
Quarter: 2009Q2

REPORT INFORMATION
  Report Type: 
  Country: None (occurrence: None)
  Receive Date: 20090625
  Receipt Date: 20090625
  Transmission Date: 20091009
  Serious: Yes (Hospitalization)
  Sender: FDA-Public Use
  Company Number: None

PATIENT
  Sex: Female
  Weight: 58.59 kg

DRUGS (2)
  1. CLOFARABINE/CAMPATH [Suspect]
     Indication: STEM CELL TRANSPLANT
     Dosage: 51MG/ 20 MG DAILY IV DRIP
     Route: 041
     Dates: start: 20090528, end: 20090701
  2. MELPHALAN [Suspect]
     Indication: STEM CELL TRANSPLANT
     Dosage: 238 MG DAILY IV DRIP
     Route: 041
     Dates: start: 20090602, end: 20090702

REACTIONS (3)
  - DIALYSIS [None]
  - RENAL FAILURE ACUTE [None]
  - RENAL TUBULAR NECROSIS [None]
